FAERS Safety Report 10397965 (Version 2)
Quarter: 2014Q4

REPORT INFORMATION
  Report Type: Report from Study
  Country: US (occurrence: US)
  Receive Date: 20140821
  Receipt Date: 20141110
  Transmission Date: 20150528
  Serious: Yes (Other)
  Sender: FDA-Public Use
  Company Number: US-ROCHE-1451764

PATIENT
  Sex: Female
  Weight: 50 kg

DRUGS (1)
  1. NUTROPIN AQ [Suspect]
     Active Substance: SOMATROPIN
     Indication: GROWTH RETARDATION
     Route: 058

REACTIONS (6)
  - Scoliosis [Unknown]
  - Dysmenorrhoea [Unknown]
  - Growth retardation [Recovering/Resolving]
  - Immunodeficiency [Unknown]
  - Headache [Unknown]
  - Blood pressure increased [Unknown]
